FAERS Safety Report 25124389 (Version 2)
Quarter: 2025Q2

REPORT INFORMATION
  Report Type: Spontaneous
  Country: US (occurrence: None)
  Receive Date: 20250326
  Receipt Date: 20250407
  Transmission Date: 20250716
  Serious: Yes (Hospitalization, Other)
  Sender: INCYTE
  Company Number: US-INCYTE CORPORATION-2025IN003061

PATIENT
  Age: 71 Year
  Weight: 89 kg

DRUGS (165)
  1. JAKAFI [Suspect]
     Active Substance: RUXOLITINIB
     Indication: Myelofibrosis
     Dosage: 15 MILLIGRAM, BID (TAKE AT ABOUT THE SAME TIME EACH DAY, TAKE WITH OR WITHOUT FOOD)
  2. PELABRESIB [Suspect]
     Active Substance: PELABRESIB
     Indication: Myelofibrosis
  3. PELABRESIB [Suspect]
     Active Substance: PELABRESIB
  4. ZYLOPRIM [Concomitant]
     Active Substance: ALLOPURINOL
     Indication: Product used for unknown indication
     Dosage: TAKE 1 TABLET (300 MG TOTAL) BY MOUTH DAILY
  5. NORVASC [Concomitant]
     Active Substance: AMLODIPINE BESYLATE
     Indication: Product used for unknown indication
     Dosage: TAKE 1 TABLET (10 MG TOTAL) BY MOUTH DAILY
  6. VITAMIN C [Concomitant]
     Active Substance: ASCORBIC ACID
     Indication: Product used for unknown indication
  7. VITAMIN C [Concomitant]
     Active Substance: ASCORBIC ACID
     Dosage: TAKE 1 TABLET/CHEW TAB (500 MG TOTAL) BY MOUTH DAILY
  8. COREG [Concomitant]
     Active Substance: CARVEDILOL
     Indication: Product used for unknown indication
     Dosage: 6.25 MILLIGRAM, BID WITH MEALS
  9. COREG [Concomitant]
     Active Substance: CARVEDILOL
     Dosage: 6.25 MILLIGRAM, BID WITH MEALS
  10. COREG [Concomitant]
     Active Substance: CARVEDILOL
     Dosage: 6.25 MILLIGRAM, BID WITH MEALS
  11. COREG [Concomitant]
     Active Substance: CARVEDILOL
     Dosage: TAKE 1 TABLET (6.25 MG TOTAL) BY MOUTH 2 (TWO) TIMES A DAY WITH MEALS
  12. FARXIGA [Concomitant]
     Active Substance: DAPAGLIFLOZIN PROPANEDIOL
     Indication: Product used for unknown indication
     Route: 065
  13. FARXIGA [Concomitant]
     Active Substance: DAPAGLIFLOZIN PROPANEDIOL
     Dosage: TAKE 1 TABLET (10 MG TOTAL) BY MOUTH DAILY
  14. TRICOR [Concomitant]
     Active Substance: FENOFIBRATE
     Indication: Product used for unknown indication
     Route: 065
  15. FERROUS SULFATE [Concomitant]
     Active Substance: FERROUS SULFATE
     Indication: Product used for unknown indication
     Dosage: TAKE 1 TABLET (324 MG TOTAL) BY MOUTH 2) (TWO) TIMES A DAY WITH MEALS
  16. ZARXIO [Concomitant]
     Active Substance: FILGRASTIM-SNDZ
     Indication: Product used for unknown indication
     Dosage: INJECT 0.5 ML (300 MCG TOTAL) UNDER THE SKIN NIGHTLY FOR 7 DAYS
     Route: 065
  17. ACULAR [Concomitant]
     Active Substance: KETOROLAC TROMETHAMINE
     Indication: Product used for unknown indication
  18. PRINIVIL [Concomitant]
     Active Substance: LISINOPRIL
     Indication: Product used for unknown indication
  19. ZESTRIL [Concomitant]
     Active Substance: LISINOPRIL
     Indication: Product used for unknown indication
     Route: 065
  20. IMODIUM [Concomitant]
     Active Substance: LOPERAMIDE HYDROCHLORIDE
     Indication: Product used for unknown indication
  21. IMODIUM [Concomitant]
     Active Substance: LOPERAMIDE HYDROCHLORIDE
     Route: 065
  22. COZAAR [Concomitant]
     Active Substance: LOSARTAN POTASSIUM
     Indication: Product used for unknown indication
  23. GLUCOPHAGE [Concomitant]
     Active Substance: METFORMIN HYDROCHLORIDE
     Indication: Product used for unknown indication
  24. GLUCOPHAGE [Concomitant]
     Active Substance: METFORMIN HYDROCHLORIDE
     Dosage: TAKE 1 TABLET (1,000 MG TOTAL) BY MOUTH DAILY WITH BREAKFAST
  25. GLUCOPHAGE [Concomitant]
     Active Substance: METFORMIN HYDROCHLORIDE
     Dosage: TAKE 1 TABLET (1,000 MG TOTAL) BY MOUTH 2 (TWO) TIMES A DAY WITH MEALS
  26. OCUFLOX [Concomitant]
     Active Substance: OFLOXACIN
     Indication: Product used for unknown indication
  27. OCUFLOX [Concomitant]
     Active Substance: OFLOXACIN
  28. OCUFLOX [Concomitant]
     Active Substance: OFLOXACIN
  29. OCUFLOX [Concomitant]
     Active Substance: OFLOXACIN
  30. ROXICODONE [Concomitant]
     Active Substance: OXYCODONE HYDROCHLORIDE
     Indication: Product used for unknown indication
  31. ROXICODONE [Concomitant]
     Active Substance: OXYCODONE HYDROCHLORIDE
  32. VELTASSA [Concomitant]
     Active Substance: PATIROMER
     Indication: Product used for unknown indication
  33. PRED FORTE [Concomitant]
     Active Substance: PREDNISOLONE ACETATE
     Indication: Product used for unknown indication
  34. COMPAZINE [Concomitant]
     Active Substance: PROCHLORPERAZINE MALEATE
     Indication: Product used for unknown indication
     Dosage: TAKE 1 TABLET (10 MG TOTAL) BY MOUTH 3 (THREE) TIMES A DAY AS NEEDED FOR NAUSEA FOR UP TO 14 DAYS
  35. LOKELMA [Concomitant]
     Active Substance: SODIUM ZIRCONIUM CYCLOSILICATE
     Indication: Product used for unknown indication
     Dosage: TAKE 1 PACKET (10 G TOTAL) BY MOUTH EARLY MORNING BEFORE BREAKFAST
  36. LOKELMA [Concomitant]
     Active Substance: SODIUM ZIRCONIUM CYCLOSILICATE
  37. LOKELMA [Concomitant]
     Active Substance: SODIUM ZIRCONIUM CYCLOSILICATE
     Dosage: TAKE 1 PACKET (10 G TOTAL) BY MOUTH 3 (THREE) TIMES A DAY FOR 3 DAYS
  38. STIOLTO RESPIMAT [Concomitant]
     Active Substance: OLODATEROL HYDROCHLORIDE\TIOTROPIUM BROMIDE MONOHYDRATE
     Indication: Product used for unknown indication
     Dosage: INHALE 2 PUFFS DAILY
  39. STIOLTO RESPIMAT [Concomitant]
     Active Substance: OLODATEROL HYDROCHLORIDE\TIOTROPIUM BROMIDE MONOHYDRATE
     Dosage: INHALE 2 PUFFS DAILY
  40. SHINGRIX [Concomitant]
     Active Substance: RECOMBINANT VARICELLA ZOSTER VIRUS (VZV) GLYCOPROTEIN E
     Indication: Product used for unknown indication
     Route: 065
  41. MINERALS\VITAMINS [Concomitant]
     Active Substance: MINERALS\VITAMINS
     Indication: Product used for unknown indication
     Dosage: 250-90-40-1 MG, TAKE BY MOUTH DAILY
  42. HUMALOG [Concomitant]
     Active Substance: INSULIN LISPRO
     Indication: Product used for unknown indication
  43. HUMALOG [Concomitant]
     Active Substance: INSULIN LISPRO
     Dosage: 8 INTERNATIONAL UNIT, Q6H RIGHT ABDOMEN/LATERAL UPPER ARM
  44. HUMALOG [Concomitant]
     Active Substance: INSULIN LISPRO
     Dosage: 8 INTERNATIONAL UNIT, Q6H LEFT ABDOMEN
  45. HUMALOG [Concomitant]
     Active Substance: INSULIN LISPRO
     Dosage: 8 INTERNATIONAL UNIT, Q6H (BEFORE MEALS AND NIGHTLY) RIGHT ABDOMEN/LATERAL UPPER ARM
  46. HUMALOG [Concomitant]
     Active Substance: INSULIN LISPRO
     Dosage: 5 INTERNATIONAL UNIT NIGHTLY LEFT ABDOMEN
  47. HUMALOG [Concomitant]
     Active Substance: INSULIN LISPRO
     Dosage: 3 INTERNATIONAL UNIT NIGHTLY LEFT ABDOMEN
  48. HUMALOG [Concomitant]
     Active Substance: INSULIN LISPRO
     Dosage: 9 INTERNATIONAL UNIT, TID AFTER MEALS RIGHT LATERAL UPPER ARM
     Route: 065
  49. HUMALOG [Concomitant]
     Active Substance: INSULIN LISPRO
     Dosage: 5 INTERNATIONAL UNIT, TID WITH MEALS RIGHT LATERAL UPPER ARM
     Route: 065
  50. HUMALOG [Concomitant]
     Active Substance: INSULIN LISPRO
     Dosage: 3 INTERNATIONAL UNIT, TID AFTER MEALS RIGHT LATERAL UPPER ARM
     Route: 065
  51. HUMALOG [Concomitant]
     Active Substance: INSULIN LISPRO
     Dosage: 3 INTERNATIONAL UNIT, TID AFTER MEALS RIGHT LATERAL UPPER ARM
     Route: 065
  52. HUMALOG [Concomitant]
     Active Substance: INSULIN LISPRO
     Dosage: 5 INTERNATIONAL UNIT, TID WITH MEALS RIGHT LATERAL UPPER ARM
     Route: 065
  53. HUMALOG [Concomitant]
     Active Substance: INSULIN LISPRO
     Dosage: 0-5 UNITS 3 TIMES DAILY WITH MEALS
     Route: 065
  54. HUMALOG [Concomitant]
     Active Substance: INSULIN LISPRO
     Dosage: 10 INTERNATIONAL UNIT, QD
     Route: 065
  55. HUMALOG [Concomitant]
     Active Substance: INSULIN LISPRO
     Dosage: 0-5 UNITS 3 TIMES DAILY WITH MEALS
     Route: 065
  56. HUMALOG [Concomitant]
     Active Substance: INSULIN LISPRO
     Dosage: 0-4 UNITS NIGHTLY
     Route: 065
  57. HUMALOG [Concomitant]
     Active Substance: INSULIN LISPRO
     Dosage: 4 INTERNATIONAL UNIT, QD
     Route: 065
  58. HUMALOG [Concomitant]
     Active Substance: INSULIN LISPRO
     Dosage: 3 INTERNATIONAL UNIT, QD
     Route: 065
  59. HUMALOG [Concomitant]
     Active Substance: INSULIN LISPRO
     Dosage: 2 INTERNATIONAL UNIT, QD
     Route: 065
  60. HUMALOG [Concomitant]
     Active Substance: INSULIN LISPRO
     Dosage: 4 INTERNATIONAL UNIT, TID WITH MEALS
     Route: 065
  61. HUMALOG [Concomitant]
     Active Substance: INSULIN LISPRO
     Dosage: 10 INTERNATIONAL UNIT, QD
     Route: 065
  62. HUMALOG [Concomitant]
     Active Substance: INSULIN LISPRO
     Dosage: 6 INTERNATIONAL UNIT, TID WITH MEALS
     Route: 065
  63. HUMALOG [Concomitant]
     Active Substance: INSULIN LISPRO
     Dosage: 0-5 UNITS NIGHTLY
     Route: 065
  64. HUMALOG [Concomitant]
     Active Substance: INSULIN LISPRO
     Dosage: 6 INTERNATIONAL UNIT, QD
     Route: 065
  65. HUMALOG [Concomitant]
     Active Substance: INSULIN LISPRO
     Dosage: 7 INTERNATIONAL UNIT, TID WITH MEALS
     Route: 065
  66. HUMALOG [Concomitant]
     Active Substance: INSULIN LISPRO
     Dosage: 8 INTERNATIONAL UNIT, TID WITH MEALS
     Route: 065
  67. HUMALOG [Concomitant]
     Active Substance: INSULIN LISPRO
     Dosage: 0-10 UNITS 3 TIMES DAILY WITH MEALS
     Route: 065
  68. HUMALOG [Concomitant]
     Active Substance: INSULIN LISPRO
     Dosage: 14 INTERNATIONAL UNIT, QD
     Route: 065
  69. HUMALOG [Concomitant]
     Active Substance: INSULIN LISPRO
     Dosage: 10 INTERNATIONAL UNIT, QD
     Route: 065
  70. HUMALOG [Concomitant]
     Active Substance: INSULIN LISPRO
     Dosage: 10 INTERNATIONAL UNIT, TID WITH MEALS
     Route: 065
  71. ADMELOG [Concomitant]
     Active Substance: INSULIN LISPRO
     Indication: Product used for unknown indication
     Dosage: 0-4 UNITS NIGHTLY
     Route: 065
  72. ADMELOG [Concomitant]
     Active Substance: INSULIN LISPRO
     Dosage: 0-5 UNITS 3 TIMES DAILY WITH MEALS
     Route: 065
  73. ADMELOG [Concomitant]
     Active Substance: INSULIN LISPRO
     Dosage: 10 INTERNATIONAL UNIT, QD
     Route: 065
  74. ADMELOG [Concomitant]
     Active Substance: INSULIN LISPRO
     Dosage: 0-5 UNITS 3 TIMES DAILY WITH MEALS
     Route: 065
  75. ADMELOG [Concomitant]
     Active Substance: INSULIN LISPRO
     Dosage: 0-4 UNITS NIGHTLY
     Route: 065
  76. ADMELOG [Concomitant]
     Active Substance: INSULIN LISPRO
     Dosage: 4 INTERNATIONAL UNIT, QD
     Route: 065
  77. ADMELOG [Concomitant]
     Active Substance: INSULIN LISPRO
     Dosage: 3 INTERNATIONAL UNIT, QD
     Route: 065
  78. ADMELOG [Concomitant]
     Active Substance: INSULIN LISPRO
     Dosage: 2 INTERNATIONAL UNIT, QD
     Route: 065
  79. ADMELOG [Concomitant]
     Active Substance: INSULIN LISPRO
     Dosage: 4 INTERNATIONAL UNIT, TID WITH MEALS
     Route: 065
  80. ADMELOG [Concomitant]
     Active Substance: INSULIN LISPRO
     Dosage: 10 INTERNATIONAL UNIT, QD
     Route: 065
  81. ADMELOG [Concomitant]
     Active Substance: INSULIN LISPRO
     Dosage: 6 INTERNATIONAL UNIT, TID WITH MEALS
     Route: 065
  82. ADMELOG [Concomitant]
     Active Substance: INSULIN LISPRO
     Dosage: 0-5 UNITS NIGHTLY
     Route: 065
  83. ADMELOG [Concomitant]
     Active Substance: INSULIN LISPRO
     Dosage: 6 INTERNATIONAL UNIT, QD
     Route: 065
  84. ADMELOG [Concomitant]
     Active Substance: INSULIN LISPRO
     Dosage: 7 INTERNATIONAL UNIT, TID WITH MEALS
     Route: 065
  85. ADMELOG [Concomitant]
     Active Substance: INSULIN LISPRO
     Dosage: 8 INTERNATIONAL UNIT, TID WITH MEALS
     Route: 065
  86. ADMELOG [Concomitant]
     Active Substance: INSULIN LISPRO
     Dosage: 0-10 UNITS 3 TIMES DAILY WITH MEALS
     Route: 065
  87. ADMELOG [Concomitant]
     Active Substance: INSULIN LISPRO
     Dosage: 14 INTERNATIONAL UNIT, QD
     Route: 065
  88. ADMELOG [Concomitant]
     Active Substance: INSULIN LISPRO
     Dosage: 10 INTERNATIONAL UNIT, QD
     Route: 065
  89. ADMELOG [Concomitant]
     Active Substance: INSULIN LISPRO
     Dosage: 10 INTERNATIONAL UNIT, TID WITH MEALS
     Route: 065
  90. LANTUS [Concomitant]
     Active Substance: INSULIN GLARGINE
     Indication: Product used for unknown indication
     Dosage: 10 INTERNATIONAL UNIT NIGHTLY RIGHT ABDOMEN
     Route: 065
  91. LANTUS [Concomitant]
     Active Substance: INSULIN GLARGINE
     Dosage: 10 INTERNATIONAL UNIT NIGHTLY LEFT ABDOMEN
     Route: 065
  92. LANTUS [Concomitant]
     Active Substance: INSULIN GLARGINE
     Dosage: 10 INTERNATIONAL UNIT NIGHTLY LEFT ABDOMEN
     Route: 065
  93. LANTUS [Concomitant]
     Active Substance: INSULIN GLARGINE
     Dosage: 20 INTERNATIONAL UNIT NIGHTLY LEFT ABDOMEN
     Route: 065
  94. LANTUS [Concomitant]
     Active Substance: INSULIN GLARGINE
     Dosage: 12 INTERNATIONAL UNIT, NIGHTLY
     Route: 065
  95. LANTUS [Concomitant]
     Active Substance: INSULIN GLARGINE
     Dosage: 12 INTERNATIONAL UNIT, QD EVERY MORNING
     Route: 065
  96. LANTUS [Concomitant]
     Active Substance: INSULIN GLARGINE
     Dosage: 16 INTERNATIONAL UNIT, QD EVERY MORNING
     Route: 065
  97. LANTUS [Concomitant]
     Active Substance: INSULIN GLARGINE
     Dosage: 18 INTERNATIONAL UNIT, QD EVERY MORNING
     Route: 065
  98. LANTUS [Concomitant]
     Active Substance: INSULIN GLARGINE
     Dosage: 20 INTERNATIONAL UNIT, QD EVERY MORNING
     Route: 065
  99. LANTUS [Concomitant]
     Active Substance: INSULIN GLARGINE
     Dosage: 24 INTERNATIONAL UNIT, QD EVERY MORNING
     Route: 065
  100. LANTUS [Concomitant]
     Active Substance: INSULIN GLARGINE
     Dosage: 30 INTERNATIONAL UNIT, QD EVERY MORNING
     Route: 065
  101. SEMGLEE (INSULIN GLARGINE) [Concomitant]
     Active Substance: INSULIN GLARGINE
     Indication: Product used for unknown indication
     Dosage: 12 INTERNATIONAL UNIT, NIGHTLY
     Route: 065
  102. SEMGLEE (INSULIN GLARGINE) [Concomitant]
     Active Substance: INSULIN GLARGINE
     Dosage: 12 INTERNATIONAL UNIT, QD EVERY MORNING
     Route: 065
  103. SEMGLEE (INSULIN GLARGINE) [Concomitant]
     Active Substance: INSULIN GLARGINE
     Dosage: 16 INTERNATIONAL UNIT, QD EVERY MORNING
     Route: 065
  104. SEMGLEE (INSULIN GLARGINE) [Concomitant]
     Active Substance: INSULIN GLARGINE
     Dosage: 18 INTERNATIONAL UNIT, QD EVERY MORNING
     Route: 065
  105. SEMGLEE (INSULIN GLARGINE) [Concomitant]
     Active Substance: INSULIN GLARGINE
     Dosage: 20 INTERNATIONAL UNIT, QD EVERY MORNING
     Route: 065
  106. SEMGLEE (INSULIN GLARGINE) [Concomitant]
     Active Substance: INSULIN GLARGINE
     Dosage: 24 INTERNATIONAL UNIT, QD EVERY MORNING
     Route: 065
  107. SEMGLEE (INSULIN GLARGINE) [Concomitant]
     Active Substance: INSULIN GLARGINE
     Dosage: 30 INTERNATIONAL UNIT, QD EVERY MORNING
     Route: 065
  108. HUMULIN N [Concomitant]
     Active Substance: INSULIN HUMAN
     Indication: Product used for unknown indication
     Route: 065
  109. HUMULIN N [Concomitant]
     Active Substance: INSULIN HUMAN
     Route: 065
  110. NOVOLIN N [Concomitant]
     Active Substance: INSULIN HUMAN
     Indication: Product used for unknown indication
     Route: 065
  111. NOVOLIN N [Concomitant]
     Active Substance: INSULIN HUMAN
     Route: 065
  112. SODIUM CHLORIDE [Concomitant]
     Active Substance: SODIUM CHLORIDE
     Indication: Product used for unknown indication
  113. SODIUM CHLORIDE [Concomitant]
     Active Substance: SODIUM CHLORIDE
  114. SODIUM CHLORIDE [Concomitant]
     Active Substance: SODIUM CHLORIDE
  115. SODIUM CHLORIDE [Concomitant]
     Active Substance: SODIUM CHLORIDE
  116. SODIUM CHLORIDE [Concomitant]
     Active Substance: SODIUM CHLORIDE
  117. SODIUM CHLORIDE [Concomitant]
     Active Substance: SODIUM CHLORIDE
  118. SODIUM CHLORIDE [Concomitant]
     Active Substance: SODIUM CHLORIDE
  119. SODIUM CHLORIDE [Concomitant]
     Active Substance: SODIUM CHLORIDE
  120. SODIUM CHLORIDE [Concomitant]
     Active Substance: SODIUM CHLORIDE
  121. SODIUM CHLORIDE [Concomitant]
     Active Substance: SODIUM CHLORIDE
  122. SODIUM CHLORIDE [Concomitant]
     Active Substance: SODIUM CHLORIDE
     Dosage: 0.9% FLUSH 0.5-20 ML EVERY 8 HOURS SCHEDULED ALTERNATE
  123. SODIUM CHLORIDE [Concomitant]
     Active Substance: SODIUM CHLORIDE
  124. SODIUM CHLORIDE [Concomitant]
     Active Substance: SODIUM CHLORIDE
     Dosage: 0.9% BOLUS 500 ML ONCE AS NEEDED
  125. SODIUM CHLORIDE [Concomitant]
     Active Substance: SODIUM CHLORIDE
     Dosage: 0.9% INFUSION ONCE AS NEEDED
  126. SODIUM CHLORIDE [Concomitant]
     Active Substance: SODIUM CHLORIDE
  127. DECADRON [Concomitant]
     Active Substance: DEXAMETHASONE
     Indication: Product used for unknown indication
     Dosage: 10 MILLIGRAM, QD (4 MG/ML INJECTION)
     Route: 065
  128. DECADRON [Concomitant]
     Active Substance: DEXAMETHASONE
     Dosage: 10 MILLIGRAM, QD (4 MG/ML INJECTION)
     Route: 065
  129. DECADRON [Concomitant]
     Active Substance: DEXAMETHASONE
     Dosage: 10 MILLIGRAM, QD (4 MG/ML INJECTION)
     Route: 065
  130. DECADRON [Concomitant]
     Active Substance: DEXAMETHASONE
     Dosage: 8 MILLIGRAM, QD TABLET
     Route: 065
  131. TOPOSAR [Concomitant]
     Active Substance: ETOPOSIDE
     Indication: Product used for unknown indication
     Dosage: 118 MG IN SODIUM CHLORIDE 0.9% (PVC-FREE) 500 ML IVPB
  132. TOPOSAR [Concomitant]
     Active Substance: ETOPOSIDE
     Dosage: 118 MG IN SODIUM CHLORIDE 0.9% (PVC-FREE) 500 ML IVPB
  133. TOPOSAR [Concomitant]
     Active Substance: ETOPOSIDE
     Dosage: 118 MG IN SODIUM CHLORIDE 0.9% (PVC-FREE) 500 ML IVPB
  134. HUMULIN R [Concomitant]
     Active Substance: INSULIN HUMAN
     Indication: Product used for unknown indication
  135. HUMULIN R [Concomitant]
     Active Substance: INSULIN HUMAN
     Route: 065
  136. NOVOLIN R [Concomitant]
     Active Substance: INSULIN HUMAN
     Indication: Product used for unknown indication
     Route: 065
  137. EPINEPHRINE [Concomitant]
     Active Substance: EPINEPHRINE
     Indication: Product used for unknown indication
  138. PEPCID [Concomitant]
     Active Substance: FAMOTIDINE
     Indication: Product used for unknown indication
  139. DEMEROL [Concomitant]
     Active Substance: MEPERIDINE HYDROCHLORIDE
     Indication: Product used for unknown indication
  140. PARAPLATIN [Concomitant]
     Active Substance: CARBOPLATIN
     Indication: Product used for unknown indication
     Dosage: 369 MG IN SODIUM CHLORIDE 0.9% 250 ML IVPB (BY AUC)
  141. BENADRYL [Concomitant]
     Active Substance: DIPHENHYDRAMINE HYDROCHLORIDE
     Indication: Product used for unknown indication
  142. BENADRYL [Concomitant]
     Active Substance: DIPHENHYDRAMINE HYDROCHLORIDE
     Dosage: 50 MILLIGRAM, QD AS NEEDED
  143. CINVANTI [Concomitant]
     Active Substance: APREPITANT
     Indication: Product used for unknown indication
     Dosage: 130 MILLIGRAM, QD
  144. SUBLIMAZE [Concomitant]
     Active Substance: FENTANYL CITRATE
     Indication: Product used for unknown indication
  145. VERSED [Concomitant]
     Active Substance: MIDAZOLAM HYDROCHLORIDE
     Indication: Product used for unknown indication
  146. MARCAINE [Concomitant]
     Active Substance: BUPIVACAINE HYDROCHLORIDE
     Indication: Product used for unknown indication
  147. FDG SCAN [Concomitant]
     Indication: Product used for unknown indication
     Route: 065
  148. NYSTATIN [Concomitant]
     Active Substance: NYSTATIN
     Indication: Product used for unknown indication
     Dosage: 500000 INTERNATIONAL UNIT, Q4H
  149. GADOTERATE MEGLUMINE [Concomitant]
     Active Substance: GADOTERATE MEGLUMINE
     Indication: Product used for unknown indication
     Route: 065
  150. ATIVAN [Concomitant]
     Active Substance: LORAZEPAM
     Indication: Product used for unknown indication
     Route: 065
  151. AREDIA [Concomitant]
     Active Substance: PAMIDRONATE DISODIUM
     Indication: Product used for unknown indication
  152. FLEXERIL [Concomitant]
     Active Substance: CYCLOBENZAPRINE HYDROCHLORIDE
     Indication: Product used for unknown indication
     Dosage: 5 MILLIGRAM, TID PRN
     Route: 065
  153. DUONEB [Concomitant]
     Active Substance: ALBUTEROL SULFATE\IPRATROPIUM BROMIDE
     Indication: Product used for unknown indication
     Dosage: 3 MILLILITER, Q6H PRN (RESP THER)
  154. LOVENOX [Concomitant]
     Active Substance: ENOXAPARIN SODIUM
     Indication: Product used for unknown indication
     Dosage: 40 MILLIGRAM, QD
     Route: 065
  155. KLOR-CON [Concomitant]
     Active Substance: POTASSIUM CHLORIDE
     Indication: Product used for unknown indication
     Dosage: 40 MILLIEQUIVALENT, Q2H PRN
     Route: 065
  156. K PHOS NEUTRAL [Concomitant]
     Active Substance: POTASSIUM PHOSPHATE, MONOBASIC\SODIUM PHOSPHATE, DIBASIC, ANHYDROUS\SODIUM PHOSPHATE, MONOBASIC, MON
     Indication: Product used for unknown indication
     Dosage: 500 MILLIGRAM, QD PRN
     Route: 065
  157. HEPARIN [Concomitant]
     Active Substance: HEPARIN SODIUM
     Indication: Product used for unknown indication
     Dosage: FLUSH 50 INTERNATIONAL UNIT
     Route: 065
  158. HEPARIN [Concomitant]
     Active Substance: HEPARIN SODIUM
     Route: 065
  159. REFRESH CLASSIC LUBRICANT EYE DROPS [Concomitant]
     Indication: Product used for unknown indication
  160. OCEAN SALINE NASAL SPRAY [Concomitant]
     Active Substance: SODIUM CHLORIDE
     Indication: Product used for unknown indication
     Route: 065
  161. EUCERIN [PARAFFIN, LIQUID;PETROLATUM;WOOL FAT] [Concomitant]
     Indication: Product used for unknown indication
     Dosage: EVERY 2 HOURS PRN
     Route: 065
  162. GRAMICIDIN\NEOMYCIN SULFATE\POLYMYXIN B SULFATE [Concomitant]
     Active Substance: GRAMICIDIN\NEOMYCIN SULFATE\POLYMYXIN B SULFATE
     Indication: Product used for unknown indication
     Dosage: 500-10,000 UNIT/GRAM OINTMENT TUBE 1 PPPLICATION Q4H PRN
     Route: 065
  163. SARNA [CAMPHOR;MENTHOL] [Concomitant]
     Indication: Product used for unknown indication
     Dosage: 0.5-0.5 % EVERY 2 HOURS PRN
     Route: 065
  164. ISOVUE 370 [Concomitant]
     Active Substance: IOPAMIDOL
     Indication: Product used for unknown indication
  165. LACTATED RINGERS SOLUTION [Concomitant]
     Active Substance: CALCIUM CHLORIDE\POTASSIUM CHLORIDE\SODIUM CHLORIDE\SODIUM LACTATE
     Indication: Product used for unknown indication

REACTIONS (22)
  - Acute respiratory failure [Not Recovered/Not Resolved]
  - Pulmonary mass [Not Recovered/Not Resolved]
  - Metastases to pleura [Unknown]
  - Metastases to bone [Unknown]
  - Pneumonia [Unknown]
  - Haemoglobin decreased [Unknown]
  - Myocardial strain imaging abnormal [Unknown]
  - Left ventricular hypertrophy [Unknown]
  - Left ventricular dysfunction [Unknown]
  - Lymphadenopathy mediastinal [Unknown]
  - Hilar lymphadenopathy [Unknown]
  - Adrenal mass [Unknown]
  - White blood cell count increased [Unknown]
  - Back pain [Unknown]
  - Dyspepsia [Unknown]
  - Gastrooesophageal reflux disease [Unknown]
  - Sleep disorder [Unknown]
  - Blood glucose decreased [Unknown]
  - Diarrhoea [Unknown]
  - Nausea [Unknown]
  - Constipation [Unknown]
  - Hypertension [Unknown]
